FAERS Safety Report 25543959 (Version 1)
Quarter: 2025Q3

REPORT INFORMATION
  Report Type: Spontaneous
  Country: US (occurrence: None)
  Receive Date: 20250710
  Receipt Date: 20250710
  Transmission Date: 20251020
  Serious: Yes (Life-Threatening, Hospitalization)
  Sender: FDA-CTU
  Company Number: None

PATIENT
  Age: 74 Year
  Sex: Female
  Weight: 47.7 kg

DRUGS (14)
  1. CELECOXIB [Suspect]
     Active Substance: CELECOXIB
     Indication: Shoulder fracture
     Dosage: 1 CAPSULE(S) DAILY ORAL
     Route: 048
     Dates: start: 20250426, end: 20250611
  2. LEVOTHYROXINE [Concomitant]
     Active Substance: LEVOTHYROXINE
  3. Metropolitan [Concomitant]
  4. TAGAMET [Concomitant]
     Active Substance: CIMETIDINE
  5. protons [Concomitant]
  6. Billings [Concomitant]
  7. Limiter [Concomitant]
  8. ASPIRIN [Concomitant]
     Active Substance: ASPIRIN
  9. VALSARTAN [Concomitant]
     Active Substance: VALSARTAN
  10. RANEXA [Concomitant]
     Active Substance: RANOLAZINE
  11. Epicenter [Concomitant]
  12. GABAPENTIN [Concomitant]
     Active Substance: GABAPENTIN
  13. CLONAZEPAM [Concomitant]
     Active Substance: CLONAZEPAM
  14. MELATONIN [Concomitant]
     Active Substance: MELATONIN

REACTIONS (2)
  - Acute myocardial infarction [None]
  - Coronary artery occlusion [None]

NARRATIVE: CASE EVENT DATE: 20250611
